FAERS Safety Report 5740982-9 (Version None)
Quarter: 2008Q2

REPORT INFORMATION
  Report Type: 
  Country: None (occurrence: None)
  Receive Date: 20080516
  Receipt Date: 20080505
  Transmission Date: 20081010
  Serious: Yes (Other)
  Sender: FDA-Public Use
  Company Number: CA-PFIZER INC-2008033583

PATIENT
  Sex: Male

DRUGS (8)
  1. LYRICA [Suspect]
     Indication: PAIN
     Route: 048
     Dates: start: 20061006, end: 20080401
  2. LYRICA [Suspect]
     Indication: NECK PAIN
  3. DILANTIN [Suspect]
     Indication: PAIN
     Dates: start: 20080101, end: 20080101
  4. HYDROMORPHONE HCL [Suspect]
     Indication: PAIN
     Dosage: TEXT:1 - 2 MG EVERY 4 HOURS AS NEEDED
     Dates: start: 20080401, end: 20080401
  5. TOPAMAX [Concomitant]
  6. LOSEC I.V. [Concomitant]
  7. RIVOTRIL [Concomitant]
  8. AMITRIPTYLINE HCL [Concomitant]

REACTIONS (4)
  - PAIN [None]
  - PHARMACEUTICAL PRODUCT COMPLAINT [None]
  - RASH [None]
  - SURGERY [None]
